FAERS Safety Report 7583104-4 (Version None)
Quarter: 2011Q2

REPORT INFORMATION
  Report Type: 
  Country: None (occurrence: None)
  Receive Date: 20110630
  Receipt Date: 20100913
  Transmission Date: 20111010
  Serious: No
  Sender: FDA-Public Use
  Company Number: US-ASTRAZENECA-2010SE37928

PATIENT
  Age: 85 Year
  Sex: Male
  Weight: 77.6 kg

DRUGS (2)
  1. ZOLADEX [Suspect]
     Indication: PROSTATE CANCER
     Route: 058
     Dates: start: 20030701
  2. ZOLADEX [Suspect]
     Route: 058
     Dates: start: 20031001

REACTIONS (7)
  - NEUROPATHY PERIPHERAL [None]
  - WEIGHT DECREASED [None]
  - LIBIDO DECREASED [None]
  - GASTRIC DISORDER [None]
  - HOT FLUSH [None]
  - SPERM CONCENTRATION ZERO [None]
  - ERECTILE DYSFUNCTION [None]
